FAERS Safety Report 14806712 (Version 1)
Quarter: 2018Q2

REPORT INFORMATION
  Report Type: Spontaneous
  Country: US (occurrence: US)
  Receive Date: 20180402
  Receipt Date: 20180402
  Transmission Date: 20180711
  Serious: Yes (Life-Threatening, Hospitalization)
  Sender: FDA-Public Use
  Company Number: None

PATIENT
  Age: 66 Year
  Sex: Female
  Weight: 91 kg

DRUGS (1)
  1. REMICADE [Suspect]
     Active Substance: INFLIXIMAB
     Indication: PSORIASIS
     Dosage: ?          OTHER FREQUENCY:INDUCTION DOSING;?
     Route: 042
     Dates: start: 20180329, end: 20180329

REACTIONS (4)
  - Malaise [None]
  - Nausea [None]
  - Loss of consciousness [None]
  - Infusion related reaction [None]

NARRATIVE: CASE EVENT DATE: 20180329
